FAERS Safety Report 9570915 (Version 1)
Quarter: 2013Q3

REPORT INFORMATION
  Report Type: Spontaneous
  Country: US (occurrence: None)
  Receive Date: 20130927
  Receipt Date: 20130927
  Transmission Date: 20140515
  Serious: No
  Sender: FDA-Public Use
  Company Number: None

PATIENT
  Age: 32 Year
  Sex: Female
  Weight: 54.43 kg

DRUGS (1)
  1. OXALIPLATIN [Suspect]
     Indication: COLON CANCER METASTATIC
     Dosage: 110MG Q2WKS IV  ?LABELED STRENGTH: 100MG/20ML?                              50MG/10ML
     Route: 042
     Dates: start: 20130515

REACTIONS (9)
  - Hyperhidrosis [None]
  - Back pain [None]
  - Nausea [None]
  - Pallor [None]
  - Flushing [None]
  - Anxiety [None]
  - Oxygen saturation decreased [None]
  - Vomiting [None]
  - Blood pressure increased [None]
